FAERS Safety Report 11067830 (Version 5)
Quarter: 2015Q4

REPORT INFORMATION
  Report Type: Spontaneous
  Country: US (occurrence: US)
  Receive Date: 20150427
  Receipt Date: 20151203
  Transmission Date: 20160304
  Serious: Yes (Hospitalization, Other)
  Sender: FDA-Public Use
  Company Number: US-BAYER-2015-153271

PATIENT
  Age: 34 Year
  Sex: Female
  Weight: 49.88 kg

DRUGS (16)
  1. FLAGYL [Concomitant]
     Active Substance: METRONIDAZOLE\METRONIDAZOLE HYDROCHLORIDE
     Indication: BACTERIAL INFECTION
     Dosage: UNK
     Dates: start: 2013
  2. SULFAMETHOXAZOLE-TRIMETHOPRIM (SMZ) [Concomitant]
     Active Substance: SULFAMETHOXAZOLE\TRIMETHOPRIM
     Dosage: 800-160 MG, BID
     Route: 048
     Dates: start: 20141217
  3. XANAX [Concomitant]
     Active Substance: ALPRAZOLAM
     Dosage: UNK
     Dates: start: 20141118
  4. MIRENA [Suspect]
     Active Substance: LEVONORGESTREL
     Indication: CONTRACEPTION
     Dosage: 20 MCG/24HR, CONT
     Route: 015
     Dates: start: 200904, end: 201503
  5. NORCO [Concomitant]
     Active Substance: ACETAMINOPHEN\HYDROCODONE BITARTRATE
     Indication: BACK PAIN
     Dosage: UNK
     Dates: start: 2012, end: 2015
  6. SOMA [Concomitant]
     Active Substance: CARISOPRODOL
     Dosage: 350 MG, Q8HR PRN
     Route: 048
     Dates: start: 20140318, end: 20140905
  7. NORCO [Concomitant]
     Active Substance: ACETAMINOPHEN\HYDROCODONE BITARTRATE
     Indication: ARTHRITIS
  8. LORAZEPAM. [Concomitant]
     Active Substance: LORAZEPAM
     Dosage: 1 MG, UNK
     Dates: start: 20140522
  9. MOBIC [Concomitant]
     Active Substance: MELOXICAM
     Dosage: 7.5 MG, QD
     Route: 048
     Dates: start: 20140318
  10. PRILOSEC [Concomitant]
     Active Substance: OMEPRAZOLE MAGNESIUM
     Dosage: 20 MG, QD
     Route: 048
     Dates: start: 20140318
  11. NORCO [Concomitant]
     Active Substance: ACETAMINOPHEN\HYDROCODONE BITARTRATE
     Indication: OSTEOPOROSIS
  12. HYDROCODONE W/ACETAMINOPHEN [Concomitant]
     Active Substance: ACETAMINOPHEN\HYDROCODONE BITARTRATE
     Dosage: 325 MG, UNK
     Route: 048
     Dates: start: 20140318, end: 20140905
  13. CIPRO [Concomitant]
     Active Substance: CIPROFLOXACIN HYDROCHLORIDE
     Dosage: 500 MG, 1 TABLET Q12 FOR 7 DAYS
     Route: 048
     Dates: start: 20141230
  14. ULTRACET [Concomitant]
     Active Substance: ACETAMINOPHEN\TRAMADOL HYDROCHLORIDE
     Dosage: 37.5-325 MG ONE TAB Q8H FOR UP TO 5 DAYS
     Route: 048
     Dates: start: 20141230
  15. FLAGYL [Concomitant]
     Active Substance: METRONIDAZOLE\METRONIDAZOLE HYDROCHLORIDE
     Indication: CYST
     Dosage: UNK
     Dates: start: 2015
  16. PHENERGAN [Concomitant]
     Active Substance: PROMETHAZINE HYDROCHLORIDE
     Dosage: 25 MG, ONE TAB Q6H PRN
     Route: 048
     Dates: start: 20141230

REACTIONS (31)
  - White blood cell count increased [None]
  - Weight decreased [None]
  - Vulvovaginal discomfort [Recovering/Resolving]
  - Dyspareunia [None]
  - Panic attack [None]
  - Urinary tract infection [None]
  - Myocardial infarction [None]
  - Pregnancy with contraceptive device [None]
  - Cyst [None]
  - Depression [None]
  - Anxiety [None]
  - Device issue [None]
  - Abdominal pain upper [Recovering/Resolving]
  - Injury [Recovering/Resolving]
  - Pain [Recovering/Resolving]
  - Emotional distress [None]
  - Sepsis [None]
  - Smear cervix abnormal [None]
  - Urinary incontinence [None]
  - Gastric infection [None]
  - Uterine perforation [Recovering/Resolving]
  - Dyspnoea [None]
  - Drug ineffective [None]
  - Device use error [None]
  - Bacterial infection [None]
  - Renal disorder [None]
  - Back pain [None]
  - Medical device discomfort [Recovering/Resolving]
  - White blood cell count decreased [None]
  - Ovarian cyst [None]
  - Bacterial test positive [None]

NARRATIVE: CASE EVENT DATE: 200904
